FAERS Safety Report 7227680-X (Version None)
Quarter: 2011Q1

REPORT INFORMATION
  Report Type: 
  Country: None (occurrence: None)
  Receive Date: 20110114
  Receipt Date: 20110111
  Transmission Date: 20110831
  Serious: No
  Sender: FDA-Public Use
  Company Number: US-PFIZER INC-2011007851

PATIENT
  Sex: Female
  Weight: 90.7 kg

DRUGS (10)
  1. CRESTOR [Concomitant]
     Dosage: 20 MG, UNK
     Route: 048
  2. VICODIN [Concomitant]
     Indication: PAIN
     Dosage: [HYDROCODONE BITARTRATE 5MG] / [PARACETAMOL 500MG], 4X/DAY
     Route: 048
  3. LIDODERM [Concomitant]
     Indication: PAIN
     Dosage: AS NEEDED
     Route: 062
  4. LEVOTHYROXINE [Concomitant]
     Indication: THYROID DISORDER
     Dosage: 112 UG, UNK
     Route: 048
  5. ATIVAN [Concomitant]
     Indication: NAUSEA
     Dosage: 0.5 MG, AS NEEDED
     Route: 048
  6. ATACAND [Concomitant]
     Indication: BLOOD PRESSURE ABNORMAL
     Dosage: 16 MG, 1X/DAY
     Route: 048
  7. FENTANYL [Concomitant]
     Indication: PAIN
     Dosage: 50 MCG/HOUR
     Route: 062
  8. ZOLOFT [Concomitant]
     Indication: DEPRESSION
     Dosage: 75 MG, 1X/DAY
     Route: 048
  9. CELEBREX [Suspect]
     Indication: SPONDYLITIS
     Dosage: 200 MG, AS NEEDED
     Route: 048
  10. CELEBREX [Suspect]
     Indication: ARTHRITIS

REACTIONS (3)
  - HYPERHIDROSIS [None]
  - INAPPROPRIATE SCHEDULE OF DRUG ADMINISTRATION [None]
  - HOT FLUSH [None]
